FAERS Safety Report 11260946 (Version 1)
Quarter: 2015Q3

REPORT INFORMATION
  Report Type: Report from Study
  Country: KR (occurrence: KR)
  Receive Date: 20150710
  Receipt Date: 20150710
  Transmission Date: 20151125
  Serious: Yes (Other)
  Sender: FDA-Public Use
  Company Number: KR-BAXTER-2015BAX037562

PATIENT

DRUGS (2)
  1. FLOSEAL HEMOSTATIC MATRIX [Suspect]
     Active Substance: THROMBIN
     Indication: HAEMOSTASIS
     Route: 065
  2. TISSEEL [Suspect]
     Active Substance: FIBRINOGEN HUMAN\THROMBIN HUMAN
     Indication: HAEMOSTASIS
     Route: 065

REACTIONS (1)
  - Post procedural complication [Unknown]
